FAERS Safety Report 6900501-8 (Version None)
Quarter: 2010Q3

REPORT INFORMATION
  Report Type: 
  Country: None (occurrence: None)
  Receive Date: 20100803
  Receipt Date: 20100722
  Transmission Date: 20110219
  Serious: Yes (Other)
  Sender: FDA-Public Use
  Company Number: IE-PFIZER INC-2010092353

PATIENT
  Sex: Female
  Weight: 53.6 kg

DRUGS (4)
  1. ZYVOX [Suspect]
     Indication: CELLULITIS
     Dosage: UNK
  2. GENTAMICIN [Concomitant]
     Dosage: UNK
  3. CLINDAMYCIN PHOSPHATE [Concomitant]
     Dosage: UNK
  4. METRONIDAZOLE [Concomitant]
     Dosage: UNK

REACTIONS (2)
  - CELLULITIS [None]
  - DRUG INEFFECTIVE [None]
